FAERS Safety Report 15675869 (Version 2)
Quarter: 2018Q4

REPORT INFORMATION
  Report Type: Spontaneous
  Country: US (occurrence: US)
  Receive Date: 20181130
  Receipt Date: 20181205
  Transmission Date: 20190205
  Serious: Yes (Other)
  Sender: FDA-Public Use
  Company Number: US-TEVA-2018-US-981472

PATIENT
  Age: 75 Year
  Sex: Female

DRUGS (1)
  1. DIAZEPAM TABLETS TEVA [Suspect]
     Active Substance: DIAZEPAM
     Indication: MUSCLE SPASMS
     Dosage: 2 PER DAY
     Route: 065
     Dates: start: 20181121

REACTIONS (4)
  - Anxiety [Unknown]
  - Product substitution issue [Unknown]
  - Drug dependence [Unknown]
  - Drug ineffective [Unknown]

NARRATIVE: CASE EVENT DATE: 20181121
